FAERS Safety Report 9555878 (Version 1)
Quarter: 2013Q3

REPORT INFORMATION
  Report Type: Spontaneous
  Country: US (occurrence: None)
  Receive Date: 20130724
  Receipt Date: 20130724
  Transmission Date: 20140515
  Serious: Yes (Disabling)
  Sender: FDA-Public Use
  Company Number: PHEH2013US009009

PATIENT
  Age: 56 Year
  Sex: Female
  Weight: 83.9 kg

DRUGS (1)
  1. GILENYA (FINGOLIMOD) CAPSULE [Suspect]
     Indication: RELAPSING-REMITTING MULTIPLE SCLEROSIS
     Route: 048
     Dates: start: 20121009, end: 20121016

REACTIONS (4)
  - Depression [None]
  - Migraine [None]
  - Nausea [None]
  - Fatigue [None]
